FAERS Safety Report 11222691 (Version 3)
Quarter: 2015Q3

REPORT INFORMATION
  Report Type: Report from Study
  Country: JP (occurrence: JP)
  Receive Date: 20150626
  Receipt Date: 20150825
  Transmission Date: 20151125
  Serious: Yes (Hospitalization)
  Sender: FDA-Public Use
  Company Number: PHJP2015JP009817

PATIENT
  Age: 71 Year
  Sex: Male
  Weight: 69 kg

DRUGS (26)
  1. JUVELA N [Concomitant]
     Active Substance: TOCOPHERYL NICOTINATE, D-.ALPHA.
     Indication: DYSLIPIDAEMIA
     Dosage: 200 MG, TID
     Route: 048
     Dates: start: 20120713
  2. LOSARTAN K [Concomitant]
     Indication: HYPERTENSION
     Dosage: 50 MG, QD
     Route: 048
     Dates: start: 20090406
  3. FLIVAS [Concomitant]
     Active Substance: NAFTOPIDIL
     Indication: BENIGN PROSTATIC HYPERPLASIA
     Dosage: 50 MG, QD
     Route: 048
     Dates: start: 20100422
  4. AIN457 [Suspect]
     Active Substance: SECUKINUMAB
     Dosage: UNK
     Route: 058
     Dates: start: 20150624
  5. SITAGLIPTIN [Concomitant]
     Active Substance: SITAGLIPTIN
     Indication: DIABETES MELLITUS
     Dosage: 50 MG, QD
     Route: 048
     Dates: start: 20130222
  6. REBAMIPIDE [Concomitant]
     Active Substance: REBAMIPIDE
     Indication: GASTRITIS
     Dosage: 100 MG, BID
     Route: 048
     Dates: start: 20141224
  7. DONASHIN [Concomitant]
     Indication: HYPERTENSION
     Dosage: 2 MG, BID
     Route: 048
     Dates: start: 20090406
  8. BAYASPIRIN [Concomitant]
     Active Substance: ASPIRIN
     Indication: PROPHYLAXIS
     Dosage: 100 MG, QD
     Route: 048
     Dates: start: 20090406
  9. BESOFTEN [Concomitant]
     Active Substance: SODIUM ALGINATE
     Indication: PUSTULAR PSORIASIS
     Dosage: BID
     Route: 065
     Dates: start: 20130821
  10. ELTACIN [Concomitant]
     Indication: FOLLICULITIS
     Dosage: PRN
     Route: 065
     Dates: start: 20141224
  11. EURAX H [Concomitant]
     Indication: ECZEMA
     Dosage: BID
     Route: 061
     Dates: start: 20140313
  12. CELECOX [Concomitant]
     Active Substance: CELECOXIB
     Indication: ARTHRALGIA
     Dosage: 100 MG, PRN
     Route: 048
     Dates: start: 20140925
  13. KINDAVATE [Concomitant]
     Indication: IMPETIGO
     Dosage: PRN
     Route: 065
     Dates: start: 20130904
  14. AIN457 [Suspect]
     Active Substance: SECUKINUMAB
     Indication: PUSTULAR PSORIASIS
     Dosage: 150 MG, ONCE 4 WEEKS
     Route: 058
     Dates: start: 20130904
  15. URSO [Concomitant]
     Active Substance: URSODIOL
     Indication: DYSLIPIDAEMIA
     Dosage: 200 MG, TID
     Route: 048
     Dates: start: 20141224
  16. CETIRIZINE [Concomitant]
     Active Substance: CETIRIZINE HYDROCHLORIDE
     Indication: PRURITUS
     Dosage: 10 MG, BID
     Route: 048
     Dates: start: 20150319
  17. ATORVASTATIN [Concomitant]
     Active Substance: ATORVASTATIN
     Indication: DYSLIPIDAEMIA
     Dosage: 5 MG, QD
     Route: 048
     Dates: start: 20090406
  18. PIOGLITAZONE. [Concomitant]
     Active Substance: PIOGLITAZONE
     Dosage: UNK
     Route: 048
     Dates: start: 20150612
  19. ALLELOCK [Concomitant]
     Active Substance: OLOPATADINE HYDROCHLORIDE
     Indication: PRURITUS
     Dosage: 10 MG, QD
     Route: 048
     Dates: start: 20150416
  20. FUROSEMIDE. [Concomitant]
     Active Substance: FUROSEMIDE
     Indication: HYPERTENSION
     Dosage: 20 MG, QD
     Route: 048
     Dates: start: 20090406
  21. METGLUCO [Concomitant]
     Active Substance: METFORMIN HYDROCHLORIDE
     Indication: DIABETES MELLITUS
     Dosage: 500 MG, TID
     Route: 048
     Dates: start: 20140228
  22. AIN457 [Suspect]
     Active Substance: SECUKINUMAB
     Dosage: 300 MG, ONCE 4 WEEKS
     Route: 058
     Dates: start: 20140219
  23. ALLORIN [Concomitant]
     Indication: HYPERURICAEMIA
     Dosage: 50 MG, BID
     Route: 048
     Dates: start: 20090406
  24. POTOREND [Concomitant]
     Indication: HYPERURICAEMIA
     Dosage: 2 DF, BID
     Route: 048
     Dates: start: 20090406
  25. GLYDIL                             /01927901/ [Concomitant]
     Indication: PUSTULAR PSORIASIS
     Dosage: BID
     Route: 065
     Dates: start: 20141224
  26. PIOGLITAZONE. [Concomitant]
     Active Substance: PIOGLITAZONE
     Indication: DIABETES MELLITUS
     Dosage: 15 MG, QD
     Route: 048
     Dates: start: 20150320

REACTIONS (1)
  - Cellulitis [Recovered/Resolved]

NARRATIVE: CASE EVENT DATE: 20150606
